FAERS Safety Report 9570379 (Version 1)
Quarter: 2013Q3

REPORT INFORMATION
  Report Type: Spontaneous
  Country: US (occurrence: None)
  Receive Date: 20130926
  Receipt Date: 20130926
  Transmission Date: 20140515
  Serious: Yes (Disabling)
  Sender: FDA-Public Use
  Company Number: None

PATIENT
  Age: 41 Year
  Sex: Male
  Weight: 112.49 kg

DRUGS (1)
  1. FACTIVE [Suspect]
     Indication: PNEUMONIA
     Dosage: 20, ONCE DAILY, TAKEN BY MOUTH
     Route: 048
     Dates: start: 20131005, end: 20131025

REACTIONS (10)
  - Night sweats [None]
  - Pain in extremity [None]
  - Pain in extremity [None]
  - Burning sensation [None]
  - Hypoaesthesia [None]
  - Paraesthesia [None]
  - Pyrexia [None]
  - Fatigue [None]
  - Malaise [None]
  - Tendon disorder [None]
